FAERS Safety Report 11616264 (Version 1)
Quarter: 2015Q4

REPORT INFORMATION
  Report Type: Spontaneous
  Country: BE (occurrence: BE)
  Receive Date: 20151009
  Receipt Date: 20151009
  Transmission Date: 20160304
  Serious: Yes (Death)
  Sender: FDA-Public Use
  Company Number: BE-PFIZER INC-2015325503

PATIENT
  Age: 48 Year
  Sex: Female

DRUGS (1)
  1. SUTENT [Suspect]
     Active Substance: SUNITINIB MALATE
     Indication: METASTATIC RENAL CELL CARCINOMA
     Dosage: 37.5 MG, CYCLIC, 4 WKS ON / 2 WKS OFF
     Route: 048
     Dates: start: 20150902

REACTIONS (3)
  - Disease progression [Unknown]
  - Metastatic renal cell carcinoma [Unknown]
  - Road traffic accident [Fatal]

NARRATIVE: CASE EVENT DATE: 20150910
